FAERS Safety Report 21258559 (Version 1)
Quarter: 2022Q3

REPORT INFORMATION
  Report Type: Spontaneous
  Country: CH (occurrence: CH)
  Receive Date: 20220826
  Receipt Date: 20220826
  Transmission Date: 20221026
  Serious: Yes (Life-Threatening, Other)
  Sender: FDA-Public Use
  Company Number: None

PATIENT
  Age: 43 Year
  Sex: Female
  Weight: 70 kg

DRUGS (6)
  1. PAXLOVID [Suspect]
     Active Substance: NIRMATRELVIR\RITONAVIR
     Indication: COVID-19 treatment
     Dosage: NO DETAILS ON DOSAGE
     Route: 048
     Dates: start: 20220729, end: 20220802
  2. NORETHINDRONE [Suspect]
     Active Substance: NORETHINDRONE
     Indication: Uterine leiomyoma
     Dosage: 5 MG, 2X/DAY
     Route: 048
     Dates: start: 20220804
  3. ZESTRIL [Concomitant]
     Active Substance: LISINOPRIL
     Dosage: 5 MG, 1X/DAY, FOR YEARS - UNCHANGED CONTINUATION
     Route: 048
  4. NEBIVOLOL [Concomitant]
     Active Substance: NEBIVOLOL
     Dosage: 2.5 MG, 2X/DAY, FOR YEARS - UNCHANGED CONTINUATION
     Route: 048
  5. EUTHYROX [Concomitant]
     Active Substance: LEVOTHYROXINE SODIUM
     Dosage: 0.05 MG 1X/DAY, FOR YEARS - UNCHANGED CONTINUATION
     Route: 048
  6. LEVOTHYROXINE SODIUM\LIOTHYRONINE SODIUM [Concomitant]
     Active Substance: LEVOTHYROXINE SODIUM\LIOTHYRONINE SODIUM
     Dosage: 0.5 TABLETS, 50UG LEVOTHYROXIN/10UG LIOTHYRONIN, 1X/DAY, FOR YEARS, LONG-TERM MEDICATION
     Route: 048

REACTIONS (3)
  - Anaphylactic reaction [Recovered/Resolved]
  - Angioedema [Recovered/Resolved]
  - Rash [Recovered/Resolved]

NARRATIVE: CASE EVENT DATE: 20220805
